FAERS Safety Report 18247021 (Version 1)
Quarter: 2020Q3

REPORT INFORMATION
  Report Type: Spontaneous
  Country: US (occurrence: US)
  Receive Date: 20200909
  Receipt Date: 20200909
  Transmission Date: 20201103
  Serious: No
  Sender: FDA-Public Use
  Company Number: US-GLENMARK PHARMACEUTICALS-2020GMK048674

PATIENT

DRUGS (1)
  1. CLINDAMYCIN AND BENZOYL PEROXIDE GEL, 1%/5% [Suspect]
     Active Substance: BENZOYL PEROXIDE\CLINDAMYCIN PHOSPHATE
     Indication: ECZEMA
     Dosage: UNK, BID (MORNING AND NIGHT)
     Route: 061

REACTIONS (2)
  - No adverse event [Unknown]
  - Drug effective for unapproved indication [Unknown]
